FAERS Safety Report 23497312 (Version 1)
Quarter: 2024Q1

REPORT INFORMATION
  Report Type: Spontaneous
  Country: US (occurrence: US)
  Receive Date: 20240208
  Receipt Date: 20240208
  Transmission Date: 20240410
  Serious: No
  Sender: FDA-Public Use
  Company Number: US-HBP-2024US030345

PATIENT
  Age: 90 Year
  Sex: Female

DRUGS (1)
  1. MECHLORETHAMINE [Suspect]
     Active Substance: MECHLORETHAMINE
     Indication: Cutaneous T-cell lymphoma stage I
     Dosage: UNK, UNKNOWN
     Route: 065

REACTIONS (4)
  - Telangiectasia [Recovered/Resolved]
  - Superficial inflammatory dermatosis [Recovered/Resolved]
  - Drug hypersensitivity [Recovered/Resolved]
  - Dermatitis allergic [Recovered/Resolved]
